FAERS Safety Report 7510149-2 (Version None)
Quarter: 2011Q2

REPORT INFORMATION
  Report Type: 
  Country: None (occurrence: None)
  Receive Date: 20110527
  Receipt Date: 20110523
  Transmission Date: 20111010
  Serious: Yes (Death, Other)
  Sender: FDA-Public Use
  Company Number: US-ASTRAZENECA-2011SE24829

PATIENT
  Age: 45 Year
  Sex: Female

DRUGS (10)
  1. SEROQUEL [Suspect]
     Indication: ANXIETY
     Route: 048
     Dates: start: 20100104
  2. AMBIEN [Concomitant]
     Indication: SLEEP DISORDER
     Dates: start: 20100114
  3. NALTREXONE HYDROCHLORIDE [Concomitant]
     Indication: ALCOHOLISM
     Dates: start: 20100802
  4. VISTARIL [Concomitant]
     Indication: ANXIETY
     Dosage: 25-50 MG, UPTO TID
     Dates: start: 20110414
  5. NEURONTIN [Concomitant]
     Indication: ANXIETY
     Dates: start: 20100802
  6. NEURONTIN [Concomitant]
     Indication: AFFECTIVE DISORDER
     Dates: start: 20100802
  7. REMERON [Concomitant]
     Indication: DEPRESSION
     Dates: start: 20100914
  8. ANAFRANIL [Concomitant]
     Indication: AFFECTIVE DISORDER
     Dates: start: 20100114
  9. SEROQUEL [Suspect]
     Indication: AFFECTIVE DISORDER
     Route: 048
     Dates: start: 20100104
  10. REMERON [Concomitant]
     Indication: SLEEP DISORDER
     Dates: start: 20100914

REACTIONS (5)
  - BRAIN DEATH [None]
  - MYOCARDIAL INFARCTION [None]
  - OFF LABEL USE [None]
  - CARDIAC ARREST [None]
  - GRAND MAL CONVULSION [None]
